FAERS Safety Report 10141568 (Version 4)
Quarter: 2015Q4

REPORT INFORMATION
  Report Type: Spontaneous
  Country: JP (occurrence: JP)
  Receive Date: 20140429
  Receipt Date: 20151028
  Transmission Date: 20160304
  Serious: Yes (Hospitalization, Other)
  Sender: FDA-Public Use
  Company Number: JP-GLAXOSMITHKLINE-B0988449A

PATIENT
  Age: 70 Year
  Sex: Female
  Weight: 34 kg

DRUGS (18)
  1. LAMOTRIGINE. [Suspect]
     Active Substance: LAMOTRIGINE
     Indication: BIPOLAR DISORDER
     Dosage: 25 MG, QD
     Route: 048
     Dates: start: 20140124, end: 20140217
  2. NIRENA L [Concomitant]
  3. MIYA-BM [Concomitant]
     Active Substance: CLOSTRIDIUM BUTYRICUM SPORES STRAIN M-55
  4. BRUFEN [Concomitant]
     Active Substance: IBUPROFEN
     Dosage: 200 MG, TID
  5. HUSTAZOL [Concomitant]
     Active Substance: CLOPERASTINE
     Dosage: 10 MG, TID
  6. ERIMIN [Concomitant]
     Active Substance: NIMETAZEPAM
     Dosage: 5 MG, QD
     Route: 048
  7. JANUVIA [Concomitant]
     Active Substance: SITAGLIPTIN PHOSPHATE
  8. CALONAL [Concomitant]
     Active Substance: ACETAMINOPHEN
     Dosage: 400 MG, PRN
  9. OLMETEC [Concomitant]
     Active Substance: OLMESARTAN MEDOXOMIL
  10. ITOROL [Concomitant]
     Active Substance: ISOSORBIDE MONONITRATE
  11. MERISLON [Concomitant]
     Active Substance: BETAHISTINE MESILATE
     Dosage: 6 MG, BID
  12. HISPORAN [Concomitant]
     Dosage: 3 MG, BID
  13. GLIMEPIRIDE. [Concomitant]
     Active Substance: GLIMEPIRIDE
  14. CALBLOCK [Concomitant]
     Active Substance: AZELNIDIPINE
  15. FERROMIA (JAPAN) [Concomitant]
     Dosage: 50 MG, QD
  16. EPADEL [Concomitant]
     Active Substance: ICOSAPENT
  17. MINEBASE [Concomitant]
     Dosage: 200 MG, BID
  18. CHINESE MEDICINE [Concomitant]
     Active Substance: UNSPECIFIED INGREDIENT
     Dosage: 2.5 G, TID

REACTIONS (17)
  - White blood cell count increased [Recovered/Resolved]
  - Drug eruption [Recovered/Resolved]
  - Pyrexia [Unknown]
  - Erythema [Recovered/Resolved]
  - Rash generalised [Recovered/Resolved]
  - Blister [Recovered/Resolved]
  - Rash [Recovered/Resolved]
  - Abdominal pain [Recovered/Resolved]
  - Abdominal pain upper [Unknown]
  - Dry skin [Unknown]
  - Abdominal distension [Unknown]
  - Herpes zoster [Recovered/Resolved]
  - Generalised erythema [Recovered/Resolved]
  - Bacterial infection [Recovered/Resolved]
  - Back pain [Recovered/Resolved]
  - Bladder dilatation [Unknown]
  - Oedema [Recovered/Resolved]

NARRATIVE: CASE EVENT DATE: 2014
